FAERS Safety Report 9630496 (Version 1)
Quarter: 2013Q4

REPORT INFORMATION
  Report Type: Spontaneous
  Country: NL (occurrence: NL)
  Receive Date: 20131018
  Receipt Date: 20131018
  Transmission Date: 20140711
  Serious: Yes (Life-Threatening)
  Sender: FDA-Public Use
  Company Number: NL-ASTRAZENECA-2013SE76128

PATIENT
  Age: 81 Year
  Sex: Male
  Weight: 85 kg

DRUGS (16)
  1. SELOKEEN ZOC [Suspect]
     Indication: TACHYCARDIA
     Route: 048
     Dates: start: 20131009
  2. DEXDOR INFVLST [Interacting]
     Indication: RESTLESSNESS
     Dosage: 100 MCG/ML
     Route: 042
     Dates: start: 20131010, end: 20131011
  3. SIMVASTATINE [Concomitant]
     Route: 048
  4. DEVARON [Concomitant]
     Route: 048
  5. MOVICOLON [Concomitant]
     Route: 048
  6. PROCORALAN [Concomitant]
     Route: 048
  7. ACETYLCYSTEINE [Concomitant]
     Route: 048
  8. HALDOL [Concomitant]
     Dosage: 5 MG/ML, 6U1,14U1,22U2,5, 1 DF THREE TIMES A DAY
     Route: 051
  9. MIDAZOLAM [Concomitant]
     Dosage: 2 MG/ML
     Route: 051
  10. PREDNISOLON [Concomitant]
     Route: 048
  11. INSUMAN [Concomitant]
     Dosage: 100 IE/ML
     Route: 058
  12. SPIRONOLACTON [Concomitant]
     Route: 048
  13. PANTOPRAZOL [Concomitant]
     Route: 042
  14. THIAMINE [Concomitant]
     Dosage: 100MG/ML, 100 MG, EVERYDAY
     Route: 042
  15. BRILIQUE [Concomitant]
     Route: 048
  16. FRAXIPARINE [Concomitant]
     Dosage: 9500 IE/ML, 1 DF EVERYDAY
     Route: 058

REACTIONS (3)
  - Drug interaction [Unknown]
  - Cardiac arrest [Recovered/Resolved]
  - Atrioventricular block complete [Recovered/Resolved]
